FAERS Safety Report 26043463 (Version 1)
Quarter: 2025Q4

REPORT INFORMATION
  Report Type: Report from Study
  Country: US (occurrence: US)
  Receive Date: 20251113
  Receipt Date: 20251113
  Transmission Date: 20260117
  Serious: Yes (Other)
  Sender: ACADIA PHARMACEUTICALS
  Company Number: US-ACADIA PHARMACEUTICALS INC.-ACA-2025-PIM-012021

PATIENT
  Sex: Female

DRUGS (1)
  1. NUPLAZID [Suspect]
     Active Substance: PIMAVANSERIN TARTRATE
     Indication: Product used for unknown indication
     Dosage: 34 MILLIGRAM FOR 5 MONTHS
     Route: 065

REACTIONS (3)
  - Psychotic disorder [Recovering/Resolving]
  - Hallucination, visual [Recovering/Resolving]
  - Drug ineffective [Not Recovered/Not Resolved]
